FAERS Safety Report 12542197 (Version 1)
Quarter: 2016Q3

REPORT INFORMATION
  Report Type: Spontaneous
  Country: US (occurrence: US)
  Receive Date: 20160708
  Receipt Date: 20160708
  Transmission Date: 20161109
  Serious: No
  Sender: FDA-Public Use
  Company Number: US-PFIZER INC-2016314682

PATIENT
  Sex: Female

DRUGS (1)
  1. ALPRAZOLAM. [Suspect]
     Active Substance: ALPRAZOLAM
     Indication: IMPAIRED GASTRIC EMPTYING
     Dosage: 1 DF, ONCE (LAST NIGHT)

REACTIONS (1)
  - Abdominal pain upper [Unknown]
